FAERS Safety Report 24449942 (Version 2)
Quarter: 2024Q4

REPORT INFORMATION
  Report Type: Spontaneous
  Country: IT (occurrence: IT)
  Receive Date: 20241017
  Receipt Date: 20241024
  Transmission Date: 20250115
  Serious: Yes (Hospitalization, Other)
  Sender: PFIZER
  Company Number: IT-002147023-NVSC2023IT022818

PATIENT
  Age: 62 Year
  Sex: Female
  Weight: 54 kg

DRUGS (8)
  1. IRINOTECAN HYDROCHLORIDE [Suspect]
     Active Substance: IRINOTECAN HYDROCHLORIDE
     Indication: Colorectal cancer metastatic
     Dosage: FREQ:2 WK;270 MG, Q2W
     Dates: start: 20230104, end: 20230907
  2. IRINOTECAN HYDROCHLORIDE [Suspect]
     Active Substance: IRINOTECAN HYDROCHLORIDE
     Dosage: FREQ:2 WK;270 MG, Q2W
     Dates: start: 20230207
  3. FLUOROURACIL [Suspect]
     Active Substance: FLUOROURACIL
     Indication: Colorectal cancer metastatic
     Dosage: FREQ:2 WK;3600 MG, Q2W
     Dates: start: 20230207
  4. FLUOROURACIL [Suspect]
     Active Substance: FLUOROURACIL
     Dosage: FREQ:2 WK;3600 MG, Q2W
     Dates: start: 20230104, end: 20230909
  5. FLUOROURACIL [Suspect]
     Active Substance: FLUOROURACIL
     Dosage: 3600 MG
     Dates: start: 20230104
  6. FLUOROURACIL [Suspect]
     Active Substance: FLUOROURACIL
     Dosage: FREQ:2 WK;600 MG, Q2W
     Dates: start: 20230104, end: 20230907
  7. FLUOROURACIL [Suspect]
     Active Substance: FLUOROURACIL
     Dosage: 2100 MG
     Dates: start: 20230104
  8. FLUOROURACIL [Suspect]
     Active Substance: FLUOROURACIL
     Dosage: FREQ:2 WK;600 MG, Q2W
     Dates: start: 20230207

REACTIONS (4)
  - Chest pain [Recovered/Resolved]
  - Neutropenia [Recovered/Resolved]
  - Troponin increased [Unknown]
  - Electrocardiogram abnormal [Unknown]

NARRATIVE: CASE EVENT DATE: 20230201
